FAERS Safety Report 22175582 (Version 1)
Quarter: 2023Q2

REPORT INFORMATION
  Report Type: Other
  Country: IR (occurrence: IR)
  Receive Date: 20230405
  Receipt Date: 20230405
  Transmission Date: 20230721
  Serious: Yes (Death, Hospitalization)
  Sender: FDA-Public Use
  Company Number: IR-BoehringerIngelheim-2023-BI-228522

PATIENT
  Age: 47 Year
  Sex: Female
  Weight: 70 kg

DRUGS (4)
  1. ALTEPLASE [Suspect]
     Active Substance: ALTEPLASE
     Indication: COVID-19
     Dosage: ALTEPLASE [ACTILYSE] 1 MG/ML SOLUTION WHICH WAS PREPARED BY DISSOLVING 50MG OF ALTEPLASE IN 50ML OF
     Route: 065
  2. ALTEPLASE [Suspect]
     Active Substance: ALTEPLASE
     Indication: Acute respiratory distress syndrome
  3. IMIPENEM [Concomitant]
     Active Substance: IMIPENEM
     Indication: Product used for unknown indication
  4. LOSARTAN [Concomitant]
     Active Substance: LOSARTAN
     Indication: Hypertension

REACTIONS (4)
  - Cardiac arrest [Fatal]
  - Seizure [Recovered/Resolved]
  - Gaze palsy [Unknown]
  - Off label use [Unknown]
